FAERS Safety Report 5622672-6 (Version None)
Quarter: 2008Q1

REPORT INFORMATION
  Report Type: 
  Country: None (occurrence: None)
  Receive Date: 20080208
  Receipt Date: 20080208
  Transmission Date: 20080703
  Serious: Yes (Hospitalization)
  Sender: FDA-Public Use
  Company Number: None

PATIENT
  Sex: Male
  Weight: 67 kg

DRUGS (14)
  1. LAPATINIB 250MG GLAXO SMITH KLINE [Suspect]
     Indication: PANCREATIC CARCINOMA METASTATIC
     Dosage: 1500MG DAILY PO
     Route: 048
     Dates: start: 20080117, end: 20080123
  2. GEMZAR [Suspect]
     Indication: PANCREATIC CARCINOMA METASTATIC
     Dosage: 1800MG 3WKS ON, 1WK OFF IV
     Route: 042
     Dates: start: 20080117, end: 20080117
  3. GEMZAR [Suspect]
  4. BENTYL [Concomitant]
  5. LISINOPRIL [Concomitant]
  6. PERCOCET [Concomitant]
  7. MEGACE [Concomitant]
  8. COUMADIN [Concomitant]
  9. DIGOXIN [Concomitant]
  10. LOPRESSOR [Concomitant]
  11. ALPRAZOLAM [Concomitant]
  12. REGLAN [Concomitant]
  13. DICYCLOMINE [Concomitant]
  14. HYDROCODONE BITARTRATE [Concomitant]

REACTIONS (9)
  - ABDOMINAL PAIN [None]
  - ANOREXIA [None]
  - DEHYDRATION [None]
  - DIARRHOEA [None]
  - DRUG TOXICITY [None]
  - NAUSEA [None]
  - ORAL INTAKE REDUCED [None]
  - PLEURAL EFFUSION [None]
  - VOMITING [None]
